FAERS Safety Report 14093240 (Version 1)
Quarter: 2017Q4

REPORT INFORMATION
  Report Type: Spontaneous
  Country: SE (occurrence: SE)
  Receive Date: 20171016
  Receipt Date: 20171016
  Transmission Date: 20180321
  Serious: Yes (Hospitalization, Other)
  Sender: FDA-Public Use
  Company Number: SE-TEVA-814883ISR

PATIENT
  Age: 78 Year
  Sex: Female

DRUGS (1)
  1. DICLOFENAC [Suspect]
     Active Substance: DICLOFENAC
     Route: 065

REACTIONS (4)
  - Cardiac disorder [Unknown]
  - Lung disorder [Unknown]
  - Renal disorder [Unknown]
  - Fluid retention [Unknown]
